FAERS Safety Report 11768897 (Version 2)
Quarter: 2016Q2

REPORT INFORMATION
  Report Type: Report from Study
  Country: HU (occurrence: HU)
  Receive Date: 20151123
  Receipt Date: 20160629
  Transmission Date: 20160815
  Serious: Yes (Hospitalization, Other)
  Sender: FDA-Public Use
  Company Number: HU-ABBVIE-15P-076-1503085-00

PATIENT
  Sex: Male

DRUGS (4)
  1. DUODOPA [Suspect]
     Active Substance: CARBIDOPA\LEVODOPA
     Indication: PARKINSON^S DISEASE
     Dosage: MORNING: 5,5ML; CONTINUOUS DOSE: 5.7ML/H; EXTRA DOSE: 2ML
     Route: 050
     Dates: start: 20130422
  2. DORMICUM [Concomitant]
     Active Substance: MIDAZOLAM\MIDAZOLAM HYDROCHLORIDE
     Indication: SLEEP DISORDER
     Dosage: 4 TABLETS AT A TIME
     Route: 048
  3. MADOPAR [Concomitant]
     Active Substance: BENSERAZIDE HYDROCHLORIDE\LEVODOPA
     Indication: PARKINSON^S DISEASE
     Dosage: 100/25MG; 10-15 TABLETS A DAY
     Route: 048
     Dates: start: 2003
  4. LEVODOPA [Concomitant]
     Active Substance: LEVODOPA
     Indication: PRODUCT USED FOR UNKNOWN INDICATION
     Dosage: 2000-3000 MG
     Route: 048

REACTIONS (8)
  - Overdose [Not Recovered/Not Resolved]
  - Disorientation [Unknown]
  - Drug dependence [Unknown]
  - Dyskinesia [Not Recovered/Not Resolved]
  - Mental impairment [Unknown]
  - Anxiety [Not Recovered/Not Resolved]
  - Panic attack [Not Recovered/Not Resolved]
  - Hallucination [Unknown]
